FAERS Safety Report 24881634 (Version 1)
Quarter: 2025Q1

REPORT INFORMATION
  Report Type: Spontaneous
  Country: US (occurrence: US)
  Receive Date: 20250124
  Receipt Date: 20250124
  Transmission Date: 20250409
  Serious: Yes (Other)
  Sender: EMCURE PHARMACEUTICALS LTD
  Company Number: US-AVET LIFESCIENCES LTD-2025-AVET-000010

PATIENT
  Age: 39 Year
  Sex: Male
  Weight: 98.5 kg

DRUGS (6)
  1. PROPOFOL [Suspect]
     Active Substance: PROPOFOL
     Indication: General anaesthesia
     Route: 042
  2. MIDAZOLAM [Concomitant]
     Active Substance: MIDAZOLAM
     Route: 042
  3. FENTANYL [Concomitant]
     Active Substance: FENTANYL
     Route: 042
  4. OXYGEN [Concomitant]
     Active Substance: OXYGEN
  5. LISINOPRIL [Concomitant]
     Active Substance: LISINOPRIL
     Route: 065
  6. VITAMINS [Concomitant]
     Active Substance: VITAMINS
     Route: 065

REACTIONS (1)
  - Muscle contractions involuntary [Recovered/Resolved]
